FAERS Safety Report 6733090-1 (Version None)
Quarter: 2010Q2

REPORT INFORMATION
  Report Type: 
  Country: None (occurrence: None)
  Receive Date: 20100518
  Receipt Date: 20100511
  Transmission Date: 20101027
  Serious: Yes (Other)
  Sender: FDA-Public Use
  Company Number: 2010SP026709

PATIENT
  Age: 72 Year
  Sex: Female

DRUGS (3)
  1. MIRTAZAPINE [Suspect]
     Indication: DEPRESSION
     Dosage: 15 MG;QD;PO ; 30 MG;QD;PO
     Route: 048
     Dates: start: 20100331, end: 20100415
  2. MIRTAZAPINE [Suspect]
     Indication: DEPRESSION
     Dosage: 15 MG;QD;PO ; 30 MG;QD;PO
     Route: 048
     Dates: start: 20100416, end: 20100501
  3. ZOLPIDEM TARTRATE [Concomitant]

REACTIONS (7)
  - CHILLS [None]
  - FACE OEDEMA [None]
  - GAIT DISTURBANCE [None]
  - INSOMNIA [None]
  - MUSCULOSKELETAL STIFFNESS [None]
  - SEROTONIN SYNDROME [None]
  - TREMOR [None]
